FAERS Safety Report 26150120 (Version 1)
Quarter: 2025Q4

REPORT INFORMATION
  Report Type: Spontaneous
  Country: US (occurrence: US)
  Receive Date: 20251212
  Receipt Date: 20251212
  Transmission Date: 20260117
  Serious: Yes (Death)
  Sender: AMGEN
  Company Number: US-AMGEN-USASP2025243353

PATIENT
  Age: 58 Year
  Sex: Male

DRUGS (2)
  1. RITUXIMAB [Suspect]
     Active Substance: RITUXIMAB
     Indication: Henoch-Schonlein purpura
     Dosage: UNK
     Route: 065
  2. Immunoglobulin [Concomitant]
     Indication: Henoch-Schonlein purpura
     Route: 040

REACTIONS (4)
  - Intestinal ischaemia [Fatal]
  - Gastrointestinal haemorrhage [Fatal]
  - Henoch-Schonlein purpura [Unknown]
  - Off label use [Unknown]
